FAERS Safety Report 6877505-7 (Version None)
Quarter: 2010Q3

REPORT INFORMATION
  Report Type: 
  Country: None (occurrence: None)
  Receive Date: 20100727
  Receipt Date: 20091211
  Transmission Date: 20110219
  Serious: No
  Sender: FDA-Public Use
  Company Number: US-ABBOTT-09P-163-0614446-00

PATIENT
  Age: 68 Year
  Sex: Female
  Weight: 57.204 kg

DRUGS (2)
  1. SYNTHROID [Suspect]
     Indication: HYPOTHYROIDISM
  2. SYNTHROID [Suspect]
     Indication: HYPOTHYROIDISM
     Route: 048

REACTIONS (4)
  - NECK MASS [None]
  - NOCTURIA [None]
  - PSYCHOMOTOR HYPERACTIVITY [None]
  - WEIGHT DECREASED [None]
